FAERS Safety Report 9331731 (Version 4)
Quarter: 2014Q2

REPORT INFORMATION
  Report Type: Spontaneous
  Country: US (occurrence: None)
  Receive Date: 20130603
  Receipt Date: 20140521
  Transmission Date: 20141212
  Serious: Yes (Hospitalization, Other)
  Sender: FDA-Public Use
  Company Number: 2013SGN00323

PATIENT
  Age: 52 Year
  Sex: Male

DRUGS (2)
  1. ADCETRIS [Suspect]
     Indication: HODGKIN^S DISEASE RECURRENT
     Dates: start: 20130328, end: 20130328
  2. ESOMEPRAZOLE (ESOMEPRAZOLE) [Concomitant]

REACTIONS (9)
  - Pancreatitis [None]
  - Herpes simplex oesophagitis [None]
  - Epstein-Barr viraemia [None]
  - Hepatic steatosis [None]
  - Gallbladder disorder [None]
  - Hypoalbuminaemia [None]
  - Hypocalcaemia [None]
  - Hyperglycaemia [None]
  - Diarrhoea [None]
